FAERS Safety Report 22541060 (Version 1)
Quarter: 2023Q2

REPORT INFORMATION
  Report Type: Spontaneous
  Country: US (occurrence: None)
  Receive Date: 20230608
  Receipt Date: 20230608
  Transmission Date: 20230722
  Serious: Yes (Death)
  Sender: FDA-Public Use
  Company Number: None

PATIENT
  Age: 71 Year
  Sex: Male

DRUGS (3)
  1. WARFARIN [Suspect]
     Active Substance: WARFARIN
  2. AMIODARONE [Suspect]
     Active Substance: AMIODARONE
  3. DILTIAZEM [Suspect]
     Active Substance: DILTIAZEM

REACTIONS (6)
  - Tachycardia [None]
  - Hypotension [None]
  - Pancytopenia [None]
  - International normalised ratio increased [None]
  - Respiratory failure [None]
  - General physical health deterioration [None]

NARRATIVE: CASE EVENT DATE: 20230318
